FAERS Safety Report 21719127 (Version 2)
Quarter: 2023Q1

REPORT INFORMATION
  Report Type: Spontaneous
  Country: PL (occurrence: PL)
  Receive Date: 20221213
  Receipt Date: 20230125
  Transmission Date: 20230418
  Serious: Yes (Other)
  Sender: FDA-Public Use
  Company Number: PL-EMA-DD-20221118-5861859-105316

PATIENT
  Age: 65 Year
  Sex: Female

DRUGS (24)
  1. DULOXETINE [Suspect]
     Active Substance: DULOXETINE
     Indication: Pain
     Dosage: 60 MILLIGRAM, ONCE A DAY
     Route: 065
  2. DULOXETINE [Suspect]
     Active Substance: DULOXETINE
     Indication: Colorectal cancer
  3. LACTULOSE [Suspect]
     Active Substance: LACTULOSE
     Indication: Dyschezia
     Dosage: UNK
     Route: 065
  4. PREGABALIN [Suspect]
     Active Substance: PREGABALIN
     Indication: Visceral pain
     Dosage: 450 MILLIGRAM, QD,(450 MG PER DAY)
     Route: 065
  5. PREGABALIN [Suspect]
     Active Substance: PREGABALIN
     Indication: Colorectal cancer
  6. PREGABALIN [Suspect]
     Active Substance: PREGABALIN
     Indication: Pain
  7. KETOPROFEN [Suspect]
     Active Substance: KETOPROFEN
     Indication: Colorectal cancer
     Dosage: 200 MILLIGRAM, ONCE A DAY
     Route: 065
  8. KETOPROFEN [Suspect]
     Active Substance: KETOPROFEN
     Indication: Visceral pain
  9. KETOPROFEN [Suspect]
     Active Substance: KETOPROFEN
     Indication: Pain
  10. BISACODYL [Suspect]
     Active Substance: BISACODYL
     Indication: Dyschezia
     Dosage: UNK
     Route: 065
  11. NALOXONE HYDROCHLORIDE\OXYCODONE HYDROCHLORIDE [Interacting]
     Active Substance: NALOXONE HYDROCHLORIDE\OXYCODONE HYDROCHLORIDE
     Indication: Visceral pain
     Dosage: 240MG OF OXYCODONE
     Route: 065
  12. NALOXONE HYDROCHLORIDE\OXYCODONE HYDROCHLORIDE [Interacting]
     Active Substance: NALOXONE HYDROCHLORIDE\OXYCODONE HYDROCHLORIDE
     Indication: Colorectal cancer
     Dosage: UNK
     Route: 065
  13. NALOXONE HYDROCHLORIDE\OXYCODONE HYDROCHLORIDE [Interacting]
     Active Substance: NALOXONE HYDROCHLORIDE\OXYCODONE HYDROCHLORIDE
     Indication: Pain
  14. HYDROXYZINE [Interacting]
     Active Substance: HYDROXYZINE HYDROCHLORIDE
     Indication: Visceral pain
     Dosage: 100 MILLIGRAM, ONCE A DAY (BEFORE BEDTIME)
     Route: 065
  15. HYDROXYZINE [Interacting]
     Active Substance: HYDROXYZINE HYDROCHLORIDE
     Indication: Colorectal cancer
     Dosage: UNK
     Route: 065
  16. HYDROXYZINE [Interacting]
     Active Substance: HYDROXYZINE HYDROCHLORIDE
     Indication: Terminal insomnia
  17. DULOXETINE [Suspect]
     Active Substance: DULOXETINE
     Indication: Visceral pain
     Dosage: 60 MILLIGRAM, ONCE A DAY
     Route: 065
  18. DULOXETINE [Suspect]
     Active Substance: DULOXETINE
     Indication: Colorectal cancer
  19. DULOXETINE [Suspect]
     Active Substance: DULOXETINE
     Indication: Pain
  20. PREGABALIN [Suspect]
     Active Substance: PREGABALIN
     Indication: Pain
     Dosage: 450 MILLIGRAM, ONCE A DAY
     Route: 065
  21. OXYCODONE [Interacting]
     Active Substance: OXYCODONE
     Indication: Colorectal cancer
     Dosage: 180 MILLIGRAM, ONCE A DAY(180 MILLIGRAM, QD)
     Route: 048
  22. OXYCODONE [Interacting]
     Active Substance: OXYCODONE
     Indication: Visceral pain
     Dosage: 240 MILLIGRAM, ONCE A DAY
     Route: 048
  23. OXYCODONE [Interacting]
     Active Substance: OXYCODONE
     Indication: Pain
  24. LORNOXICAM [Concomitant]
     Active Substance: LORNOXICAM
     Indication: Product used for unknown indication
     Dosage: UNK
     Route: 065

REACTIONS (12)
  - Anticholinergic syndrome [Recovered/Resolved]
  - Dyschezia [Recovering/Resolving]
  - Functional gastrointestinal disorder [Recovered/Resolved]
  - Rash [Unknown]
  - Potentiating drug interaction [Unknown]
  - Constipation [Recovering/Resolving]
  - Pain [Recovering/Resolving]
  - Overlap syndrome [Unknown]
  - Insomnia [Unknown]
  - Off label use [Recovered/Resolved]
  - Drug ineffective [Unknown]
  - Drug interaction [Unknown]
